FAERS Safety Report 4539190-9 (Version None)
Quarter: 2004Q4

REPORT INFORMATION
  Report Type: 
  Country: None (occurrence: None)
  Receive Date: 20041222
  Receipt Date: 20041210
  Transmission Date: 20050328
  Serious: Yes (Hospitalization)
  Sender: FDA-Public Use
  Company Number: RENA-11209

PATIENT
  Age: 66 Year
  Sex: Female
  Weight: 33.7 kg

DRUGS (18)
  1. RENAGEL [Suspect]
     Indication: HYPERPHOSPHATAEMIA
     Dosage: 0.5 G TID PO
     Route: 048
     Dates: start: 20040413, end: 20040814
  2. RENAGEL [Suspect]
     Indication: HYPERPHOSPHATAEMIA
     Dosage: 0.25 G TID PO
     Route: 048
     Dates: start: 20040224, end: 20040413
  3. PREDNISOLONE [Concomitant]
  4. KALISELUM (CALCIUM POLYSTYRENE SULFONATE) [Concomitant]
  5. PURSENNID [Concomitant]
  6. KORTRYTHM [Concomitant]
  7. LANSOPRAZOLE [Concomitant]
  8. LOXONIN [Concomitant]
  9. RYHTMODAN [Concomitant]
  10. SELBEX [Concomitant]
  11. ASPENON [Concomitant]
  12. DIGOSIN [Concomitant]
  13. OXAROL (MAXACALCITOL) [Concomitant]
  14. LACTULOSE [Concomitant]
  15. NITRODERM [Concomitant]
  16. ALOSENN [Concomitant]
  17. LAXOBERON [Concomitant]
  18. MAGNESIUM OXIDE [Concomitant]

REACTIONS (4)
  - ABDOMINAL DISTENSION [None]
  - CONSTIPATION [None]
  - FLATULENCE [None]
  - INTESTINAL PERFORATION [None]
